FAERS Safety Report 23509441 (Version 2)
Quarter: 2024Q1

REPORT INFORMATION
  Report Type: Report from Study
  Country: GB (occurrence: GB)
  Receive Date: 20240210
  Receipt Date: 20240329
  Transmission Date: 20240410
  Serious: Yes (Other)
  Sender: FDA-Public Use
  Company Number: GB-UCBSA-2023009508

PATIENT
  Age: 42 Year
  Sex: Male

DRUGS (1)
  1. CERTOLIZUMAB PEGOL [Suspect]
     Active Substance: CERTOLIZUMAB PEGOL
     Indication: Psoriatic arthropathy
     Dosage: 200 MILLIGRAM, EV 2 WEEKS(QOW)
     Route: 058

REACTIONS (7)
  - Psoriatic arthropathy [Unknown]
  - Incorrect dose administered [Unknown]
  - Product leakage [Unknown]
  - Product distribution issue [Unknown]
  - Therapy interrupted [Unknown]
  - Device defective [Unknown]
  - Device failure [Unknown]

NARRATIVE: CASE EVENT DATE: 20240201
